FAERS Safety Report 6820262-0 (Version None)
Quarter: 2010Q3

REPORT INFORMATION
  Report Type: 
  Country: None (occurrence: None)
  Receive Date: 20100707
  Receipt Date: 20100629
  Transmission Date: 20110219
  Serious: Yes (Hospitalization)
  Sender: FDA-Public Use
  Company Number: JP-PFIZER INC-2010052197

PATIENT
  Age: 30 Year
  Sex: Female
  Weight: 45 kg

DRUGS (3)
  1. CELECOX [Suspect]
     Indication: BACK PAIN
     Dosage: 100 MG, 2X/DAY
     Route: 048
     Dates: start: 20091026, end: 20091106
  2. GASTER [Suspect]
     Indication: GASTRITIS PROPHYLAXIS
     Dosage: 10 MG, 2X/DAY
     Route: 048
     Dates: start: 20091026, end: 20091106
  3. GASLON [Suspect]
     Indication: GASTRITIS PROPHYLAXIS
     Dosage: 2 MG, 2X/DAY
     Route: 048
     Dates: start: 20091026, end: 20091106

REACTIONS (6)
  - LIP OEDEMA [None]
  - OROPHARYNGEAL PAIN [None]
  - PHARYNGEAL ERYTHEMA [None]
  - PYREXIA [None]
  - RASH MACULO-PAPULAR [None]
  - TONGUE OEDEMA [None]
